FAERS Safety Report 20732155 (Version 1)
Quarter: 2022Q2

REPORT INFORMATION
  Report Type: Report from Study
  Country: TW (occurrence: TW)
  Receive Date: 20220420
  Receipt Date: 20220420
  Transmission Date: 20220721
  Serious: Yes (Other)
  Sender: FDA-Public Use
  Company Number: TW-BAYER-2022A055373

PATIENT
  Sex: Female

DRUGS (1)
  1. MIRENA [Suspect]
     Active Substance: LEVONORGESTREL
     Dosage: 20?G/DAY
     Route: 015
     Dates: start: 20211105, end: 20220331

REACTIONS (5)
  - Blood loss anaemia [None]
  - Heavy menstrual bleeding [None]
  - Device expulsion [Recovered/Resolved]
  - Adenomyosis [None]
  - Dysmenorrhoea [None]

NARRATIVE: CASE EVENT DATE: 20220331
